FAERS Safety Report 10279445 (Version 1)
Quarter: 2014Q3

REPORT INFORMATION
  Report Type: Spontaneous
  Country: US (occurrence: None)
  Receive Date: 20140702
  Receipt Date: 20140702
  Transmission Date: 20150326
  Serious: Yes (Death)
  Sender: FDA-Public Use
  Company Number: None

PATIENT
  Age: 80 Year
  Sex: Male
  Weight: 81.8 kg

DRUGS (1)
  1. XARELTO [Suspect]
     Active Substance: RIVAROXABAN
     Indication: ATRIAL FIBRILLATION
     Route: 048
     Dates: start: 201302, end: 20140201

REACTIONS (5)
  - Shock [None]
  - Acute abdomen [None]
  - Haemorrhage [None]
  - Splenic haemorrhage [None]
  - Coagulopathy [None]

NARRATIVE: CASE EVENT DATE: 20140201
